FAERS Safety Report 12991871 (Version 1)
Quarter: 2016Q4

REPORT INFORMATION
  Report Type: Spontaneous
  Country: JP (occurrence: JP)
  Receive Date: 20161201
  Receipt Date: 20161201
  Transmission Date: 20170207
  Serious: Yes (Hospitalization, Other)
  Sender: FDA-Public Use
  Company Number: JP-GILEAD-2016-0245296

PATIENT
  Age: 78 Year
  Sex: Female

DRUGS (8)
  1. SOVALDI [Suspect]
     Active Substance: SOFOSBUVIR
     Indication: CHRONIC HEPATITIS C
     Dosage: UNK
     Route: 065
     Dates: start: 20150917, end: 20151008
  2. ASPARTATE CALCIUM [Concomitant]
     Active Substance: CALCIUM ASPARTATE
  3. MAGNESIUM OXIDE. [Concomitant]
     Active Substance: MAGNESIUM OXIDE
  4. RIBAVIRIN. [Suspect]
     Active Substance: RIBAVIRIN
     Indication: CHRONIC HEPATITIS C
     Dosage: UNK
     Route: 065
     Dates: start: 20150917, end: 20151008
  5. ELDECALCITOL [Concomitant]
     Active Substance: ELDECALCITOL
  6. SOVALDI [Suspect]
     Active Substance: SOFOSBUVIR
     Dosage: UNK
     Route: 065
     Dates: start: 20151022, end: 201512
  7. RALOXIFENE. [Concomitant]
     Active Substance: RALOXIFENE
  8. RIBAVIRIN. [Suspect]
     Active Substance: RIBAVIRIN
     Dosage: UNK
     Route: 065
     Dates: start: 20151022, end: 201512

REACTIONS (2)
  - Anaemia [Unknown]
  - Milk-alkali syndrome [Recovering/Resolving]

NARRATIVE: CASE EVENT DATE: 201510
